FAERS Safety Report 5835023-9 (Version None)
Quarter: 2008Q3

REPORT INFORMATION
  Report Type: 
  Country: None (occurrence: None)
  Receive Date: 20080806
  Receipt Date: 20080729
  Transmission Date: 20090109
  Serious: Yes (Other)
  Sender: FDA-Public Use
  Company Number: US-ALLERGAN-0809501US

PATIENT

DRUGS (1)
  1. FLUOROURACIL [Suspect]
     Indication: BOWEN'S DISEASE
     Route: 061

REACTIONS (1)
  - DISEASE RECURRENCE [None]
